FAERS Safety Report 4659394-4 (Version None)
Quarter: 2005Q2

REPORT INFORMATION
  Report Type: 
  Country: None (occurrence: None)
  Receive Date: 20050411
  Receipt Date: 20041214
  Transmission Date: 20051028
  Serious: Yes (Other)
  Sender: FDA-Public Use
  Company Number: 389428

PATIENT
  Sex: Male

DRUGS (1)
  1. FUZEON [Suspect]

REACTIONS (5)
  - BURNING SENSATION [None]
  - HYPERSENSITIVITY [None]
  - INJECTION SITE IRRITATION [None]
  - PRURITUS [None]
  - URTICARIA [None]
